FAERS Safety Report 11068117 (Version 2)
Quarter: 2016Q1

REPORT INFORMATION
  Report Type: Report from Study
  Country: US (occurrence: US)
  Receive Date: 20150427
  Receipt Date: 20160219
  Transmission Date: 20160525
  Serious: No
  Sender: FDA-Public Use
  Company Number: US-AMGEN-USASP2015039332

PATIENT
  Age: 72 Year
  Sex: Female

DRUGS (4)
  1. ACTEMRA [Concomitant]
     Active Substance: TOCILIZUMAB
  2. NEUPOGEN [Concomitant]
     Active Substance: FILGRASTIM
     Dosage: UNK
     Route: 065
  3. ENBREL [Suspect]
     Active Substance: ETANERCEPT
     Indication: RHEUMATOID ARTHRITIS
     Dosage: 50 MG, QWK
     Route: 065
     Dates: start: 200301
  4. ORENCIA [Concomitant]
     Active Substance: ABATACEPT

REACTIONS (7)
  - Pain in extremity [Not Recovered/Not Resolved]
  - Arthralgia [Not Recovered/Not Resolved]
  - Road traffic accident [Recovered/Resolved]
  - Neck pain [Not Recovered/Not Resolved]
  - White blood cell count decreased [Recovered/Resolved]
  - Joint swelling [Not Recovered/Not Resolved]
  - Hyperkeratosis [Unknown]

NARRATIVE: CASE EVENT DATE: 201010
